FAERS Safety Report 7442585-7 (Version None)
Quarter: 2011Q2

REPORT INFORMATION
  Report Type: 
  Country: None (occurrence: None)
  Receive Date: 20110426
  Receipt Date: 20110426
  Transmission Date: 20111010
  Serious: Yes (Life-Threatening, Hospitalization)
  Sender: FDA-Public Use
  Company Number: None

PATIENT
  Age: 27 Year
  Sex: Female
  Weight: 81.6475 kg

DRUGS (1)
  1. AZATHIOPRINE [Suspect]
     Indication: SYSTEMIC LUPUS ERYTHEMATOSUS
     Dosage: 100 MG DAILY PO
     Route: 048
     Dates: start: 20071201, end: 20080206

REACTIONS (5)
  - MUCOSAL INFLAMMATION [None]
  - FATIGUE [None]
  - PANCYTOPENIA [None]
  - CHILLS [None]
  - GINGIVAL BLEEDING [None]
